FAERS Safety Report 18639952 (Version 1)
Quarter: 2020Q4

REPORT INFORMATION
  Report Type: Spontaneous
  Country: US (occurrence: US)
  Receive Date: 20201220
  Receipt Date: 20201220
  Transmission Date: 20210114
  Serious: No
  Sender: FDA-Public Use
  Company Number: US-PACIRA-202000140

PATIENT
  Age: 20 Year
  Sex: Male

DRUGS (2)
  1. EXPAREL [Suspect]
     Active Substance: BUPIVACAINE
     Indication: ORAL SURGERY
     Dosage: 8 ML (92 MG)
     Dates: start: 20200427, end: 20200427
  2. LIDOCAINE WITH EPI [Concomitant]
     Active Substance: EPINEPHRINE\LIDOCAINE
     Indication: ORAL SURGERY
     Dosage: NOT REPORTED
     Route: 065
     Dates: start: 20200427, end: 20200427

REACTIONS (3)
  - Labelled drug-drug interaction medication error [Recovered/Resolved]
  - Product storage error [Recovered/Resolved]
  - No adverse event [Unknown]

NARRATIVE: CASE EVENT DATE: 20200427
